FAERS Safety Report 16089936 (Version 6)
Quarter: 2019Q2

REPORT INFORMATION
  Report Type: Spontaneous
  Country: DE (occurrence: DE)
  Receive Date: 20190319
  Receipt Date: 20190611
  Transmission Date: 20190711
  Serious: Yes (Hospitalization, Other)
  Sender: FDA-Public Use
  Company Number: DE-MYLANLABS-2019M1024013

PATIENT
  Age: 80 Year
  Sex: Female

DRUGS (16)
  1. ENBREL [Suspect]
     Active Substance: ETANERCEPT
     Indication: PRODUCT USED FOR UNKNOWN INDICATION
     Dosage: UNK
     Route: 065
     Dates: start: 200807, end: 201205
  2. ROACTEMRA [Suspect]
     Active Substance: TOCILIZUMAB
     Dosage: 162 UNK, MOST RECENT DOSE 08/JAN/2016
     Route: 058
     Dates: start: 201507
  3. PREDNISOLONE. [Concomitant]
     Active Substance: PREDNISOLONE
     Indication: PRODUCT USED FOR UNKNOWN INDICATION
     Dosage: 2.5 MILLIGRAM, BID (5 MILLIGRAM, QD)
     Route: 065
  4. METHOTREXATE. [Suspect]
     Active Substance: METHOTREXATE
     Indication: RHEUMATOID ARTHRITIS
     Dosage: 15 MILLIGRAM
     Route: 058
     Dates: start: 20121204, end: 20150128
  5. METHOTREXATE. [Suspect]
     Active Substance: METHOTREXATE
     Dosage: 15 MILLIGRAM, QW
     Route: 058
     Dates: start: 20150313, end: 20150428
  6. METHOTREXATE. [Suspect]
     Active Substance: METHOTREXATE
     Dosage: 15 MILLIGRAM, QW
     Route: 058
     Dates: start: 20150313, end: 20150313
  7. ROACTEMRA [Suspect]
     Active Substance: TOCILIZUMAB
     Indication: RHEUMATOID ARTHRITIS
     Dosage: 162 MILLIGRAM, QW
     Route: 058
     Dates: start: 20150313, end: 20150428
  8. ORENCIA [Concomitant]
     Active Substance: ABATACEPT
     Indication: RHEUMATOID ARTHRITIS
     Dosage: 125 MG, WEEKLY
     Route: 065
  9. METHOTREXATE. [Suspect]
     Active Substance: METHOTREXATE
     Dosage: 15 MILLIGRAM, Q2W (30 MG, QW)
     Route: 058
     Dates: start: 201504, end: 20150617
  10. PREDNISOLONE. [Concomitant]
     Active Substance: PREDNISOLONE
     Dosage: UNK
  11. METHOTREXATE. [Suspect]
     Active Substance: METHOTREXATE
     Dosage: 15 MILLIGRAM, QW
     Route: 058
     Dates: start: 201507, end: 20160108
  12. ARCOXIA [Suspect]
     Active Substance: ETORICOXIB
     Indication: PRODUCT USED FOR UNKNOWN INDICATION
     Dosage: UNK
     Route: 048
  13. SECUKINUMAB. [Concomitant]
     Active Substance: SECUKINUMAB
     Dosage: 75 MG, MONTHLY
     Route: 058
     Dates: start: 20121204, end: 20150128
  14. ALENDRONATE [Suspect]
     Active Substance: ALENDRONATE SODIUM
     Indication: PRODUCT USED FOR UNKNOWN INDICATION
     Dosage: UNK
     Route: 048
  15. ROACTEMRA [Suspect]
     Active Substance: TOCILIZUMAB
     Dosage: 162 MILLIGRAM
     Route: 058
     Dates: start: 201504, end: 20150617
  16. PREDNISOLONE. [Concomitant]
     Active Substance: PREDNISOLONE
     Dosage: 20 MILLIGRAM, QD(10 MG, BID)
     Route: 065

REACTIONS (11)
  - Rheumatoid nodule [Unknown]
  - Purulent discharge [Unknown]
  - Rheumatoid arthritis [Unknown]
  - Respiratory tract infection [Unknown]
  - Infected fistula [Unknown]
  - Drug intolerance [Unknown]
  - Spinal fracture [Unknown]
  - Spinal pain [Unknown]
  - Drug ineffective [Unknown]
  - Spondylolisthesis [Unknown]
  - Osteoarthritis [Unknown]

NARRATIVE: CASE EVENT DATE: 20170322
